FAERS Safety Report 24974263 (Version 2)
Quarter: 2025Q1

REPORT INFORMATION
  Report Type: Spontaneous
  Country: IT (occurrence: IT)
  Receive Date: 20250217
  Receipt Date: 20250227
  Transmission Date: 20250409
  Serious: Yes (Death, Hospitalization, Other)
  Sender: SANDOZ
  Company Number: IT-NOVNCHHQ-CHPA2014IT008047

PATIENT
  Age: 63 Year
  Sex: Female

DRUGS (1)
  1. ACETAMINOPHEN [Suspect]
     Active Substance: ACETAMINOPHEN
     Indication: Product used for unknown indication
     Route: 065

REACTIONS (19)
  - Septic shock [Fatal]
  - Rhabdomyolysis [Fatal]
  - Disseminated intravascular coagulation [Fatal]
  - Overdose [Fatal]
  - Toxicity to various agents [Fatal]
  - Bullous haemorrhagic dermatosis [Fatal]
  - Epidermolysis [Fatal]
  - Myocardial ischaemia [Fatal]
  - Necrosis [Unknown]
  - Renal failure [Unknown]
  - Presyncope [Unknown]
  - Confusional state [Unknown]
  - Asthenia [Unknown]
  - Petechiae [Unknown]
  - Cyanosis [Unknown]
  - Hepatic function abnormal [Unknown]
  - Rash [Unknown]
  - Ischaemia [Unknown]
  - Skin lesion [Unknown]
